FAERS Safety Report 6288136-4 (Version None)
Quarter: 2009Q3

REPORT INFORMATION
  Report Type: 
  Country: None (occurrence: None)
  Receive Date: 20090729
  Receipt Date: 20080903
  Transmission Date: 20100115
  Serious: No
  Sender: FDA-Public Use
  Company Number: A0745934A

PATIENT
  Age: 4 Month
  Sex: Female

DRUGS (2)
  1. ZANTAC [Suspect]
     Dosage: 1.5ML TWICE PER DAY
     Route: 048
  2. NO CONCURRENT MEDICATION [Concomitant]

REACTIONS (2)
  - DISCOMFORT [None]
  - SCREAMING [None]
